FAERS Safety Report 12009822 (Version 1)
Quarter: 2016Q1

REPORT INFORMATION
  Report Type: Spontaneous
  Country: US (occurrence: None)
  Receive Date: 20160204
  Receipt Date: 20160204
  Transmission Date: 20160526
  Serious: No
  Sender: FDA-Public Use
  Company Number: None

PATIENT
  Age: 36 Year
  Sex: Female

DRUGS (1)
  1. GABAPENTIN. [Suspect]
     Active Substance: GABAPENTIN
     Indication: NEURALGIA
     Dosage: 800MG  2QAM + HS PO
     Route: 048
     Dates: start: 201507

REACTIONS (1)
  - Maternal exposure during pregnancy [None]

NARRATIVE: CASE EVENT DATE: 20160107
